FAERS Safety Report 5146381-5 (Version None)
Quarter: 2006Q4

REPORT INFORMATION
  Report Type: 
  Country: None (occurrence: None)
  Receive Date: 20061108
  Receipt Date: 20061102
  Transmission Date: 20070319
  Serious: Yes (Other)
  Sender: FDA-Public Use
  Company Number: JP-ROXANE LABORATORIES, INC-2006-BP-12835RO

PATIENT
  Age: 66 Year
  Sex: Female
  Weight: 48 kg

DRUGS (5)
  1. MIDAZOLAM HYDROCHLORIDE [Suspect]
     Indication: INDUCTION OF ANAESTHESIA
  2. SEVOFLURANE [Suspect]
     Indication: INDUCTION OF ANAESTHESIA
     Route: 055
  3. LIDOCAINE AND EPINEPHRINE [Suspect]
     Indication: INDUCTION OF ANAESTHESIA
     Route: 008
  4. PROPOFOL [Suspect]
     Indication: INDUCTION OF ANAESTHESIA
  5. FENTANYL CITRATE [Suspect]
     Indication: INDUCTION OF ANAESTHESIA

REACTIONS (3)
  - BRONCHOMALACIA [None]
  - COLLAPSE OF LUNG [None]
  - TRACHEOMALACIA [None]
